FAERS Safety Report 20542474 (Version 3)
Quarter: 2022Q1

REPORT INFORMATION
  Report Type: Spontaneous
  Country: SG (occurrence: SG)
  Receive Date: 20220302
  Receipt Date: 20220317
  Transmission Date: 20220423
  Serious: Yes (Hospitalization, Other)
  Sender: FDA-Public Use
  Company Number: SG-002147023-NVSC2022SG038817

PATIENT

DRUGS (17)
  1. RUXOLITINIB [Suspect]
     Active Substance: RUXOLITINIB
     Indication: Product used for unknown indication
     Dosage: 5 MG, OM
     Route: 065
     Dates: start: 20171227, end: 20180102
  2. RUXOLITINIB [Suspect]
     Active Substance: RUXOLITINIB
     Dosage: 5 MG, BID
     Route: 065
     Dates: start: 20180103, end: 20180207
  3. RUXOLITINIB [Suspect]
     Active Substance: RUXOLITINIB
     Dosage: 10 MG, BID
     Route: 065
     Dates: start: 20180208, end: 20180312
  4. RUXOLITINIB [Suspect]
     Active Substance: RUXOLITINIB
     Dosage: 5 MG, BID
     Route: 065
     Dates: start: 201809
  5. MIRTAZAPINE [Suspect]
     Active Substance: MIRTAZAPINE
     Indication: Product used for unknown indication
     Dosage: 30 MG, ON
     Route: 065
  6. OMEPRAZOLE [Suspect]
     Active Substance: OMEPRAZOLE
     Indication: Product used for unknown indication
     Dosage: 20 MG, OM
     Route: 065
  7. TAMSULOSIN [Suspect]
     Active Substance: TAMSULOSIN
     Indication: Product used for unknown indication
     Dosage: UNK
     Route: 065
  8. GABAPENTIN [Suspect]
     Active Substance: GABAPENTIN
     Indication: Product used for unknown indication
     Dosage: UNK
     Route: 065
  9. ATORVASTATIN [Suspect]
     Active Substance: ATORVASTATIN
     Indication: Product used for unknown indication
     Route: 065
  10. VORICONAZOLE [Suspect]
     Active Substance: VORICONAZOLE
     Indication: Bronchopulmonary aspergillosis
     Route: 065
  11. HYDROXYUREA [Suspect]
     Active Substance: HYDROXYUREA
     Indication: Myeloproliferative neoplasm
     Dosage: 1 G, OM
     Route: 065
  12. HYDROXYUREA [Suspect]
     Active Substance: HYDROXYUREA
     Indication: Primary myelofibrosis
  13. PYRIDOXINE\THIAMINE [Suspect]
     Active Substance: PYRIDOXINE\THIAMINE
     Indication: Product used for unknown indication
     Dosage: 1 DOSAGE FORM, OM
     Route: 065
  14. CALCIUM ACETATE [Suspect]
     Active Substance: CALCIUM ACETATE
     Indication: Product used for unknown indication
     Dosage: 1 DOSAGE FORM, BID
     Route: 065
  15. FUROSEMIDE [Suspect]
     Active Substance: FUROSEMIDE
     Indication: Product used for unknown indication
     Dosage: 20 MG, OM
     Route: 065
  16. ASPIRIN [Suspect]
     Active Substance: ASPIRIN
     Indication: Product used for unknown indication
     Dosage: 100 MG, OM
     Route: 065
  17. ENOXAPARIN SODIUM [Concomitant]
     Active Substance: ENOXAPARIN SODIUM
     Indication: Product used for unknown indication
     Dosage: UNK
     Route: 065

REACTIONS (54)
  - Alanine aminotransferase decreased [Unknown]
  - Inflammation [Unknown]
  - Blood albumin decreased [Unknown]
  - Fungal test positive [Unknown]
  - Basophil count increased [Unknown]
  - Pleural effusion [Unknown]
  - Haematoma [Unknown]
  - Bilirubin conjugated increased [Unknown]
  - Activated partial thromboplastin time prolonged [Unknown]
  - Haemorrhage [Unknown]
  - Prothrombin time prolonged [Unknown]
  - Atelectasis [Unknown]
  - Cavernous sinus thrombosis [Unknown]
  - Creatinine renal clearance decreased [Unknown]
  - Blood creatinine increased [Unknown]
  - Sinus tachycardia [Unknown]
  - Contusion [Unknown]
  - Coagulopathy [Unknown]
  - Fall [Unknown]
  - Generalised tonic-clonic seizure [Unknown]
  - Azotaemia [Unknown]
  - Blood glucose increased [Unknown]
  - Haematocrit decreased [Unknown]
  - Anisocytosis [Unknown]
  - Haemoglobin decreased [Unknown]
  - Hypovolaemic shock [Unknown]
  - Bronchopulmonary aspergillosis [Unknown]
  - Sinusitis [Unknown]
  - Orbital apex syndrome [Unknown]
  - Lymphocyte count increased [Unknown]
  - Mean cell volume increased [Unknown]
  - Gastroenteritis [Unknown]
  - Gastrointestinal wall thickening [Unknown]
  - Monocyte count increased [Unknown]
  - Affective disorder [Unknown]
  - Neutrophil count increased [Unknown]
  - Platelet count decreased [Unknown]
  - Pneumonia [Unknown]
  - Red cell distribution width increased [Unknown]
  - Red blood cell count decreased [Unknown]
  - Sepsis [Unknown]
  - Septic shock [Unknown]
  - Cytomegalovirus colitis [Unknown]
  - Blood sodium decreased [Unknown]
  - Splenic infarction [Unknown]
  - Chronic kidney disease [Unknown]
  - Drug ineffective [Unknown]
  - Leukocytosis [Unknown]
  - Neutrophilia [Unknown]
  - Neutrophil toxic granulation present [Unknown]
  - Thrombocytopenia [Unknown]
  - Blood urea increased [Unknown]
  - Urinary tract infection [Unknown]
  - White blood cell count increased [Unknown]

NARRATIVE: CASE EVENT DATE: 20180301
